FAERS Safety Report 6998757-9 (Version None)
Quarter: 2010Q3

REPORT INFORMATION
  Report Type: 
  Country: None (occurrence: None)
  Receive Date: 20100920
  Receipt Date: 20100408
  Transmission Date: 20110219
  Serious: No
  Sender: FDA-Public Use
  Company Number: US-ASTRAZENECA-2010SE15750

PATIENT
  Age: 18 Year
  Sex: Male

DRUGS (3)
  1. SEROQUEL XR [Suspect]
     Indication: AUTISM
     Route: 048
     Dates: end: 20100319
  2. SEROQUEL XR [Suspect]
     Route: 048
     Dates: start: 20100320, end: 20100407
  3. SEROQUEL XR [Suspect]
     Route: 048
     Dates: start: 20100408

REACTIONS (2)
  - AGGRESSION [None]
  - WRONG TECHNIQUE IN DRUG USAGE PROCESS [None]
